FAERS Safety Report 6660579-6 (Version None)
Quarter: 2010Q1

REPORT INFORMATION
  Report Type: 
  Country: None (occurrence: None)
  Receive Date: 20100331
  Receipt Date: 20100323
  Transmission Date: 20100710
  Serious: Yes (Hospitalization)
  Sender: FDA-Public Use
  Company Number: FR-BRISTOL-MYERS SQUIBB COMPANY-15039852

PATIENT
  Age: 61 Year
  Sex: Male

DRUGS (2)
  1. ERBITUX [Suspect]
     Indication: RECTAL CANCER
     Route: 042
     Dates: start: 20090908
  2. CAMPTOSAR [Suspect]
     Indication: RECTAL CANCER
     Dosage: SOLN FOR INJ;DISCON FROM APR TO SEPT IN 2008 AND 2009
     Route: 042
     Dates: start: 20070107

REACTIONS (6)
  - ECZEMA [None]
  - EOSINOPHILIA [None]
  - PRURITUS [None]
  - RENAL FAILURE ACUTE [None]
  - SKIN TOXICITY [None]
  - TOXIC SKIN ERUPTION [None]
